FAERS Safety Report 20612116 (Version 1)
Quarter: 2022Q1

REPORT INFORMATION
  Report Type: Spontaneous
  Country: US (occurrence: US)
  Receive Date: 20220318
  Receipt Date: 20220318
  Transmission Date: 20220423
  Serious: No
  Sender: FDA-Public Use
  Company Number: US-ABBVIE-21K-163-4188815-00

PATIENT

DRUGS (1)
  1. RINVOQ [Suspect]
     Active Substance: UPADACITINIB
     Indication: Rheumatoid arthritis
     Route: 048

REACTIONS (8)
  - Abdominal distension [Unknown]
  - Asthenia [Unknown]
  - Back disorder [Unknown]
  - Infrequent bowel movements [Unknown]
  - Urinary retention [Unknown]
  - Pain [Unknown]
  - Vomiting [Unknown]
  - Flatulence [Unknown]
